FAERS Safety Report 6835434 (Version 2)
Quarter: 2014Q3

REPORT INFORMATION
  Report Type: Spontaneous
  Country: US (occurrence: None)
  Receive Date: 20081128
  Receipt Date: 20140828
  Transmission Date: 20150326
  Serious: Yes (Other)
  Sender: FDA-Public Use
  Company Number: 2008S1011429

PATIENT
  Age: 69 Year
  Sex: Female

DRUGS (13)
  1. PHOSPHO-SODA [Suspect]
     Active Substance: SODIUM PHOSPHATE, DIBASIC\SODIUM PHOSPHATE, MONOBASIC
     Indication: COLONOSCOPY
     Dosage: 45 MG;BID;PO
     Route: 048
  2. FLEET [Suspect]
     Active Substance: BISACODYL\GLYCERIN\MINERAL OIL\SODIUM PHOSPHATE, DIBASIC\SODIUM PHOSPHATE, MONOBASIC
     Indication: SIGMOIDOSCOPY
     Dates: start: 19950320
  3. PULMICORT TURBUHALER [Concomitant]
     Active Substance: BUDESONIDE
  4. FLEXERIL [Concomitant]
     Active Substance: CYCLOBENZAPRINE HYDROCHLORIDE
  5. ASPIRIN (ACETYLSALICYLIC ACID) [Concomitant]
     Active Substance: ASPIRIN
  6. CYCRIN (MEDROXYPROGESTERONE ACETATE) [Concomitant]
  7. VICODIN (PARACETAMOL, HYDROCODONE BITARTRATE) [Concomitant]
  8. COZAAR (LOSARTAN  POTASSIUIM) [Concomitant]
  9. HYZAAR (HYDROCHLOROTHIAZIDE, LOSARTAN POTASSIUM) [Concomitant]
  10. ASACOL [Concomitant]
     Active Substance: MESALAMINE
  11. CANASA (MESALAZINE) [Concomitant]
  12. RANITIDINE [Concomitant]
     Active Substance: RANITIDINE\RANITIDINE HYDROCHLORIDE
  13. PREVACID [Concomitant]
     Active Substance: LANSOPRAZOLE

REACTIONS (10)
  - Nausea [None]
  - Drug ineffective [None]
  - Diarrhoea [None]
  - Nephrogenic anaemia [None]
  - Renal failure [None]
  - Vomiting [None]
  - Malaise [None]
  - Proctitis [None]
  - Hypertension [None]
  - Gastrooesophageal reflux disease [None]

NARRATIVE: CASE EVENT DATE: 20060503
